FAERS Safety Report 7512058-1 (Version None)
Quarter: 2011Q2

REPORT INFORMATION
  Report Type: 
  Country: None (occurrence: None)
  Receive Date: 20110531
  Receipt Date: 20110512
  Transmission Date: 20111010
  Serious: Yes (Other)
  Sender: FDA-Public Use
  Company Number: US-BAYER-2011-006334

PATIENT
  Age: 16 Year
  Sex: Female
  Weight: 58.957 kg

DRUGS (4)
  1. YAZ [Suspect]
     Indication: DYSMENORRHOEA
     Dosage: UNK
     Dates: start: 20060925, end: 20100601
  2. YASMIN [Suspect]
     Indication: DYSMENORRHOEA
     Dosage: UNK
  3. SINGULAIR [Concomitant]
     Dosage: 10 MG, UNK
     Route: 048
  4. HPV VACCINE [Concomitant]

REACTIONS (5)
  - GALLBLADDER PAIN [None]
  - CHOLECYSTITIS CHRONIC [None]
  - GALLBLADDER DISORDER [None]
  - DIARRHOEA [None]
  - ABDOMINAL PAIN [None]
